FAERS Safety Report 7732951-4 (Version None)
Quarter: 2011Q3

REPORT INFORMATION
  Report Type: 
  Country: None (occurrence: None)
  Receive Date: 20110907
  Receipt Date: 20110901
  Transmission Date: 20111222
  Serious: Yes (Other)
  Sender: FDA-Public Use
  Company Number: US-PFIZER INC-2011205323

PATIENT
  Sex: Female
  Weight: 100 kg

DRUGS (7)
  1. ZOLOFT [Concomitant]
     Indication: ANXIETY
  2. GABAPENTIN [Suspect]
     Indication: FIBROMYALGIA
     Dosage: 800 MG, 2X/DAY
     Route: 048
     Dates: start: 20100401, end: 20100501
  3. CYCLOBENZAPRINE [Concomitant]
     Indication: BACK DISORDER
  4. GABAPENTIN [Suspect]
     Dosage: 400 MG, 2X/DAY
     Route: 048
     Dates: start: 20100501, end: 20110101
  5. ZOLOFT [Concomitant]
     Indication: DEPRESSION
     Dosage: UNK
  6. GABAPENTIN [Suspect]
     Dosage: 400 MG, 1X/DAY
     Route: 048
     Dates: start: 20110101
  7. CYCLOBENZAPRINE [Concomitant]
     Indication: MUSCULOSKELETAL DISCOMFORT
     Dosage: UNK

REACTIONS (5)
  - BLOOD CHOLESTEROL INCREASED [None]
  - VISUAL ACUITY REDUCED [None]
  - DECREASED ACTIVITY [None]
  - FEELING ABNORMAL [None]
  - DIABETES MELLITUS [None]
